FAERS Safety Report 9331809 (Version 2)
Quarter: 2013Q2

REPORT INFORMATION
  Report Type: Spontaneous
  Country: AT (occurrence: AT)
  Receive Date: 20130605
  Receipt Date: 20130607
  Transmission Date: 20140414
  Serious: Yes (Hospitalization, Congenital Anomaly, Other)
  Sender: FDA-Public Use
  Company Number: PHHY2013AT055939

PATIENT
  Sex: 0

DRUGS (1)
  1. METOPROLOL [Suspect]
     Dosage: MATERNAL DOSE: UKN
     Route: 064

REACTIONS (4)
  - Congenital cystic kidney disease [Unknown]
  - Microcephaly [Unknown]
  - Hypertension [Unknown]
  - Foetal exposure during pregnancy [Unknown]
